FAERS Safety Report 21106166 (Version 1)
Quarter: 2022Q3

REPORT INFORMATION
  Report Type: Spontaneous
  Country: US (occurrence: US)
  Receive Date: 20220720
  Receipt Date: 20220720
  Transmission Date: 20221027
  Serious: No
  Sender: FDA-Public Use
  Company Number: US-PFIZER INC-202200984280

PATIENT

DRUGS (2)
  1. PAXLOVID [Suspect]
     Active Substance: NIRMATRELVIR\RITONAVIR
     Indication: COVID-19 treatment
     Dosage: UNK
  2. LINZESS [Suspect]
     Active Substance: LINACLOTIDE
     Dosage: UNK

REACTIONS (3)
  - Blood pressure increased [Unknown]
  - Muscle spasms [Recovered/Resolved]
  - Product dose omission issue [Unknown]
